FAERS Safety Report 5975127-3 (Version None)
Quarter: 2008Q4

REPORT INFORMATION
  Report Type: 
  Country: None (occurrence: None)
  Receive Date: 20081202
  Receipt Date: 20081124
  Transmission Date: 20090506
  Serious: Yes (Other)
  Sender: FDA-Public Use
  Company Number: US-BAYER-200814574BCC

PATIENT
  Sex: Female

DRUGS (1)
  1. RID LICE KILLING SHAMPOO + CONDITION [Suspect]

REACTIONS (1)
  - BRAIN NEOPLASM [None]
